FAERS Safety Report 23331962 (Version 1)
Quarter: 2023Q4

REPORT INFORMATION
  Report Type: Spontaneous
  Country: US (occurrence: US)
  Receive Date: 20231222
  Receipt Date: 20231222
  Transmission Date: 20240109
  Serious: No
  Sender: FDA-Public Use
  Company Number: US-SUN PHARMACEUTICAL INDUSTRIES LTD-2023R1-408755

PATIENT
  Age: 26 Year
  Sex: Male

DRUGS (1)
  1. ISOTRETINOIN [Suspect]
     Active Substance: ISOTRETINOIN
     Indication: Product used for unknown indication
     Dosage: UNK
     Route: 065
     Dates: start: 20230713

REACTIONS (6)
  - Acne [Unknown]
  - Chapped lips [Unknown]
  - Dry skin [Unknown]
  - Headache [Unknown]
  - Rash erythematous [Unknown]
  - Scar [Unknown]

NARRATIVE: CASE EVENT DATE: 20230810
